FAERS Safety Report 9628851 (Version 3)
Quarter: 2014Q1

REPORT INFORMATION
  Report Type: Spontaneous
  Country: IT (occurrence: IT)
  Receive Date: 20131017
  Receipt Date: 20140131
  Transmission Date: 20141002
  Serious: Yes (Hospitalization)
  Sender: FDA-Public Use
  Company Number: IT-VERTEX PHARMACEUTICALS INC-2013-010454

PATIENT
  Age: 67 Year
  Sex: Female
  Weight: 88 kg

DRUGS (10)
  1. INCIVO [Suspect]
     Indication: HEPATIC CIRRHOSIS
     Dosage: UNK, QD
     Route: 048
     Dates: start: 20130726, end: 20130927
  2. COPEGUS [Suspect]
     Indication: HEPATIC CIRRHOSIS
     Dosage: DOSAGE FORM: FILM COATED TABLET
     Route: 048
     Dates: start: 20130726
  3. COPEGUS [Suspect]
     Dosage: DOSAGE FORM: FILM COATED TABLET
     Route: 048
     Dates: start: 20130903
  4. COPEGUS [Suspect]
     Dosage: DOSAGE FORM: FILM COATED TABLET
     Route: 048
     Dates: end: 20131003
  5. TRIATEC [Suspect]
     Indication: HYPERTENSION
     Dosage: 5 MG, QD
     Route: 048
  6. PEGASYS [Concomitant]
     Indication: HEPATIC CIRRHOSIS
     Dosage: DOSAGE FORM: SOLUTION FOR INJECTION
     Route: 058
     Dates: start: 20130726, end: 20131003
  7. CONCOR [Concomitant]
     Indication: HYPERTENSION
     Dosage: DOSAGE FORM: TABLETS
     Route: 048
     Dates: end: 20131003
  8. DELORAZEPAM [Concomitant]
     Indication: INSOMNIA
     Dosage: DOSAGE FORM: ORAL DROPS
     Route: 048
     Dates: end: 20131003
  9. ESOMEPRAZOLE [Concomitant]
     Indication: ABDOMINAL PAIN UPPER
     Dosage: DOSAGE FORM: TABLETS
     Route: 048
     Dates: end: 20130920
  10. PLASIL [Concomitant]
     Indication: PROPHYLAXIS OF NAUSEA AND VOMITING
     Dosage: DOSAGE FORM: TABLETS
     Route: 048
     Dates: end: 20130920

REACTIONS (1)
  - Eczema [Recovered/Resolved]
